FAERS Safety Report 6576670-9 (Version None)
Quarter: 2010Q1

REPORT INFORMATION
  Report Type: 
  Country: None (occurrence: None)
  Receive Date: 20100210
  Receipt Date: 20100201
  Transmission Date: 20100710
  Serious: Yes (Hospitalization)
  Sender: FDA-Public Use
  Company Number: FR-ASTRAZENECA-2010SE05054

PATIENT
  Age: 37 Year
  Sex: Male

DRUGS (12)
  1. TENORMIN [Suspect]
     Route: 048
     Dates: start: 20040101
  2. NEORAL [Suspect]
     Route: 048
     Dates: start: 20040101
  3. CELLCEPT [Suspect]
     Route: 048
     Dates: start: 20040101
  4. SOLUPRED [Suspect]
     Route: 048
     Dates: start: 20040101
  5. AMLOR [Suspect]
     Route: 048
     Dates: start: 20040101
  6. EZTROL [Suspect]
     Route: 048
  7. VASTEN [Suspect]
     Route: 048
     Dates: start: 20040101
  8. MIRCERA [Suspect]
     Route: 058
     Dates: start: 20040101
  9. APROVEL [Suspect]
     Route: 048
     Dates: start: 20040101
  10. DEDROGYL [Suspect]
     Route: 048
     Dates: start: 20040101
  11. TARDYFERON [Suspect]
     Route: 048
     Dates: start: 20040101
  12. SODIUM BICARBONATE [Suspect]
     Route: 048
     Dates: start: 20040101

REACTIONS (2)
  - HALLUCINATION, AUDITORY [None]
  - MEMORY IMPAIRMENT [None]
